FAERS Safety Report 13379043 (Version 1)
Quarter: 2017Q1

REPORT INFORMATION
  Report Type: Spontaneous
  Country: US (occurrence: US)
  Receive Date: 20170328
  Receipt Date: 20170328
  Transmission Date: 20170429
  Serious: No
  Sender: FDA-Public Use
  Company Number: US-ROCHE-1102135

PATIENT
  Sex: Male

DRUGS (1)
  1. XOLAIR [Suspect]
     Active Substance: OMALIZUMAB
     Indication: PRODUCT USED FOR UNKNOWN INDICATION
     Route: 058

REACTIONS (6)
  - Wheelchair user [Unknown]
  - Medical device implantation [Unknown]
  - Ill-defined disorder [Unknown]
  - Drug dose omission [Unknown]
  - Abasia [Unknown]
  - Intervertebral disc operation [Unknown]
